FAERS Safety Report 18262072 (Version 1)
Quarter: 2020Q3

REPORT INFORMATION
  Report Type: Spontaneous
  Country: US (occurrence: US)
  Receive Date: 20200914
  Receipt Date: 20200914
  Transmission Date: 20201103
  Serious: No
  Sender: FDA-Public Use
  Company Number: NVSC2020US250043

PATIENT
  Sex: Female
  Weight: 49.89 kg

DRUGS (2)
  1. COMBIPATCH [Suspect]
     Active Substance: ESTRADIOL\NORETHINDRONE ACETATE
     Dosage: 0.05/0.14 MG,1 PATCH INTO HALF
     Route: 062
  2. COMBIPATCH [Suspect]
     Active Substance: ESTRADIOL\NORETHINDRONE ACETATE
     Indication: HORMONE REPLACEMENT THERAPY
     Dosage: 0.05/0.14 MG,1 PATCH EVERY 3?4 DAYS
     Route: 062

REACTIONS (2)
  - Wrong technique in product usage process [Not Recovered/Not Resolved]
  - Underdose [Not Recovered/Not Resolved]
